FAERS Safety Report 8320075-7 (Version None)
Quarter: 2012Q2

REPORT INFORMATION
  Report Type: 
  Country: None (occurrence: None)
  Receive Date: 20120428
  Receipt Date: 20120419
  Transmission Date: 20120825
  Serious: Yes (Hospitalization)
  Sender: FDA-Public Use
  Company Number: JP-VERTEX PHARMACEUTICALS INC.-AE-2012-004557

PATIENT
  Age: 65 Year
  Sex: Female

DRUGS (16)
  1. TELAVIC (TELAPREVIR) [Suspect]
     Indication: HEPATITIS C
     Route: 048
     Dates: start: 20120126, end: 20120214
  2. PEGINTERFERON [Concomitant]
     Indication: HEPATITIS C
     Route: 051
     Dates: start: 20120126, end: 20120209
  3. DIOVAN [Concomitant]
     Route: 048
  4. VALSARTAN  AND HYDROCHLOROTHIAZIDE [Concomitant]
     Route: 048
  5. REBAMIPIDE [Concomitant]
     Route: 048
     Dates: start: 20120126
  6. GLYCYRON [Concomitant]
     Route: 048
     Dates: start: 20120416
  7. PEGINTERFERON [Concomitant]
     Route: 051
     Dates: start: 20120223, end: 20120301
  8. RIBAVIRIN [Concomitant]
     Indication: HEPATITIS C
     Route: 048
     Dates: start: 20120126, end: 20120208
  9. LOXOPROFEN [Concomitant]
     Route: 048
     Dates: start: 20120126
  10. PRIMPERAN TAB [Concomitant]
     Route: 048
     Dates: start: 20120128
  11. URSO 250 [Concomitant]
     Route: 048
     Dates: start: 20120416
  12. TELAVIC (TELAPREVIR) [Suspect]
     Route: 048
     Dates: start: 20120221, end: 20120307
  13. RIBAVIRIN [Concomitant]
     Route: 048
     Dates: start: 20120209, end: 20120307
  14. NIFEDIPINE [Concomitant]
     Route: 048
  15. FAMOTIDINE [Concomitant]
     Route: 048
  16. PROHEPARUM [Concomitant]
     Route: 048
     Dates: start: 20120416

REACTIONS (3)
  - DIZZINESS [None]
  - DECREASED APPETITE [None]
  - DEAFNESS [None]
